FAERS Safety Report 7797472-1 (Version None)
Quarter: 2011Q4

REPORT INFORMATION
  Report Type: 
  Country: None (occurrence: None)
  Receive Date: 20111004
  Receipt Date: 20111004
  Transmission Date: 20120403
  Serious: No
  Sender: FDA-Public Use
  Company Number: None

PATIENT
  Sex: Male
  Weight: 77.2 kg

DRUGS (2)
  1. TARCEVA [Suspect]
     Dosage: 700 MG
  2. GEMCITABINE HYDROCHLORIDE [Suspect]
     Dosage: 3780 MG

REACTIONS (1)
  - HYPOPHOSPHATAEMIA [None]
